FAERS Safety Report 15811288 (Version 1)
Quarter: 2019Q1

REPORT INFORMATION
  Report Type: Spontaneous
  Country: US (occurrence: US)
  Receive Date: 20190104
  Receipt Date: 20190104
  Transmission Date: 20190417
  Serious: Yes (Hospitalization)
  Sender: FDA-Public Use
  Company Number: None

PATIENT

DRUGS (1)
  1. FOSPHENYTOIN  FOSPHENYTOIN  SODIUM [Suspect]
     Active Substance: FOSPHENYTOIN SODIUM

REACTIONS (1)
  - Product label issue [None]
